FAERS Safety Report 9136694 (Version 1)
Quarter: 2013Q1

REPORT INFORMATION
  Report Type: Spontaneous
  Country: US (occurrence: US)
  Receive Date: 20130304
  Receipt Date: 20130304
  Transmission Date: 20140127
  Serious: No
  Sender: FDA-Public Use
  Company Number: US-ABBOTT-12P-163-0978964-00

PATIENT
  Sex: Male

DRUGS (15)
  1. ANDROGEL [Suspect]
     Dosage: 2 PACKETS. THE PATIENT DID NOT KNOW IF HE WAS TAKING 2.5GM OR 5GM PACKETS
     Route: 061
     Dates: start: 201207
  2. ANDROGEL [Suspect]
     Dosage: 2 PUMPS
     Route: 061
     Dates: start: 2011, end: 201205
  3. ANDROGEL [Suspect]
     Dosage: 4 PUMPS
     Route: 061
     Dates: start: 201205
  4. PERCOCET [Concomitant]
     Indication: PRODUCT USED FOR UNKNOWN INDICATION
     Dosage: UNKNOWN
  5. ZANAFLEX [Concomitant]
     Indication: MUSCLE SPASMS
     Dosage: UNKNOWN
  6. MELOXICAM [Concomitant]
     Indication: ARTHRITIS
     Dosage: UNKNOWN
  7. FISH OIL [Concomitant]
     Indication: SUPPLEMENTATION THERAPY
     Dosage: UNKNOWN
  8. MAGNESIUM [Concomitant]
     Indication: MINERAL SUPPLEMENTATION
     Dosage: UNKNOWN
  9. NIACIN [Concomitant]
     Indication: VITAMIN SUPPLEMENTATION
     Dosage: UNKNOWN
  10. NEURONTIN [Concomitant]
     Indication: PRODUCT USED FOR UNKNOWN INDICATION
     Dosage: UNKNOWN
  11. LOPID [Concomitant]
     Indication: BLOOD CHOLESTEROL INCREASED
     Dosage: UNKNOWN
  12. ZYRTEC [Concomitant]
     Indication: SEASONAL ALLERGY
     Dosage: UNKNOWN
  13. LISINOPRIL [Concomitant]
     Indication: HYPERTENSION
     Dosage: UNKNOWN
  14. PRILOSEC [Concomitant]
     Indication: GASTROOESOPHAGEAL REFLUX DISEASE
     Dosage: UNKNOWN
  15. MELATONIN [Concomitant]
     Indication: INSOMNIA
     Dosage: UNKNOWN

REACTIONS (5)
  - Blood testosterone decreased [Not Recovered/Not Resolved]
  - Blood testosterone decreased [Not Recovered/Not Resolved]
  - Red blood cell count increased [Not Recovered/Not Resolved]
  - Mood swings [Not Recovered/Not Resolved]
  - Asthenia [Not Recovered/Not Resolved]
